FAERS Safety Report 5819760-8 (Version None)
Quarter: 2008Q3

REPORT INFORMATION
  Report Type: 
  Country: None (occurrence: None)
  Receive Date: 20080723
  Receipt Date: 20080711
  Transmission Date: 20090109
  Serious: Yes (Life-Threatening, Hospitalization)
  Sender: FDA-Public Use
  Company Number: FR-PFIZER INC-2008057466

PATIENT
  Age: 84 Year
  Sex: Female

DRUGS (3)
  1. VERAPAMIL HYDROCHLORIDE [Suspect]
     Indication: SUPRAVENTRICULAR EXTRASYSTOLES
     Route: 048
  2. OLMETEC [Suspect]
     Indication: HYPERTENSION
     Route: 048
  3. RAMIPRIL [Suspect]
     Indication: HYPERTENSION
     Route: 048

REACTIONS (5)
  - ATRIAL FIBRILLATION [None]
  - BUNDLE BRANCH BLOCK RIGHT [None]
  - CARDIAC FAILURE [None]
  - CARDIO-RESPIRATORY ARREST [None]
  - HYPERKALAEMIA [None]
